FAERS Safety Report 10873609 (Version 1)
Quarter: 2015Q1

REPORT INFORMATION
  Report Type: Spontaneous
  Country: US (occurrence: US)
  Receive Date: 20150227
  Receipt Date: 20150227
  Transmission Date: 20150721
  Serious: Yes (Other)
  Sender: FDA-Public Use
  Company Number: US-PFIZER INC-2015072308

PATIENT
  Sex: Female
  Weight: 65 kg

DRUGS (1)
  1. TIKOSYN [Suspect]
     Active Substance: DOFETILIDE
     Indication: SUPRAVENTRICULAR TACHYCARDIA
     Dosage: 125 ?G, 2X/DAY
     Route: 048
     Dates: start: 2008

REACTIONS (2)
  - Herpes ophthalmic [Unknown]
  - Hypertonic bladder [Unknown]
